FAERS Safety Report 4798040-6 (Version None)
Quarter: 2005Q3

REPORT INFORMATION
  Report Type: 
  Country: None (occurrence: None)
  Receive Date: 20050929
  Receipt Date: 20050819
  Transmission Date: 20060218
  Serious: No
  Sender: FDA-Public Use
  Company Number: 05P-163-0308622

PATIENT
  Age: 77 Year
  Sex: Male
  Weight: 149.5 kg

DRUGS (11)
  1. HUMIRA [Suspect]
     Indication: RHEUMATOID ARTHRITIS
     Dosage: 40 MG, 1 IN 2 WK, SUBCUTANEOUS
     Route: 058
     Dates: start: 20040101, end: 20050811
  2. PREDNISONE [Concomitant]
  3. VICODIN [Concomitant]
  4. GLIBENCLAMIDE [Concomitant]
  5. METOPROLOL TARTRATE [Concomitant]
  6. METOPROLOL [Concomitant]
  7. CAPTOPRIL [Concomitant]
  8. ZOCOR [Concomitant]
  9. B-KOMPLEX ^LECIVA^ [Concomitant]
  10. ACETYLSALICYLIC ACID SRT [Concomitant]
  11. FOLIC ACID [Concomitant]

REACTIONS (6)
  - CONTUSION [None]
  - INJECTION SITE ERYTHEMA [None]
  - JOINT SWELLING [None]
  - MACULAR DEGENERATION [None]
  - RHEUMATOID ARTHRITIS [None]
  - STAPHYLOCOCCAL INFECTION [None]
